FAERS Safety Report 15879567 (Version 1)
Quarter: 2019Q1

REPORT INFORMATION
  Report Type: Spontaneous
  Country: FR (occurrence: FR)
  Receive Date: 20190128
  Receipt Date: 20190128
  Transmission Date: 20190417
  Serious: Yes (Life-Threatening)
  Sender: FDA-Public Use
  Company Number: FR-MYLANLABS-2019M1005155

PATIENT
  Age: 5 Decade
  Sex: Female

DRUGS (20)
  1. PREDNISONE. [Suspect]
     Active Substance: PREDNISONE
     Indication: PERICARDIAL EFFUSION
  2. PREDNISONE. [Suspect]
     Active Substance: PREDNISONE
     Indication: CARDIAC TAMPONADE
  3. DIGOXIN. [Suspect]
     Active Substance: DIGOXIN
     Indication: SYSTEMIC SCLERODERMA
     Route: 065
  4. DIGOXIN. [Suspect]
     Active Substance: DIGOXIN
     Indication: SYSTOLIC DYSFUNCTION
  5. DIGOXIN. [Suspect]
     Active Substance: DIGOXIN
     Indication: ARRHYTHMIA
  6. COLCHICINE. [Suspect]
     Active Substance: COLCHICINE
     Indication: SYSTEMIC SCLERODERMA
     Route: 065
     Dates: start: 201408
  7. METHOTREXATE. [Suspect]
     Active Substance: METHOTREXATE
     Indication: SYSTEMIC SCLERODERMA
     Route: 065
  8. PREDNISONE. [Suspect]
     Active Substance: PREDNISONE
     Indication: ARRHYTHMIA
     Dosage: LATER ADMINISTERED AS 1 MG/KG/DAY
     Route: 065
  9. PREDNISONE. [Suspect]
     Active Substance: PREDNISONE
     Indication: ATRIAL FIBRILLATION
     Dosage: 1 MILLIGRAM/KILOGRAM, QD
     Route: 065
  10. COLCHICINE. [Suspect]
     Active Substance: COLCHICINE
     Indication: PERICARDIAL EFFUSION
  11. RITUXIMAB. [Suspect]
     Active Substance: RITUXIMAB
     Indication: SYSTEMIC SCLERODERMA
     Route: 065
     Dates: start: 201502
  12. PREDNISONE. [Suspect]
     Active Substance: PREDNISONE
     Indication: SYSTOLIC DYSFUNCTION
  13. DIGOXIN. [Suspect]
     Active Substance: DIGOXIN
     Indication: PERICARDITIS
  14. DIGOXIN. [Suspect]
     Active Substance: DIGOXIN
     Indication: ATRIAL FIBRILLATION
  15. PREDNISONE. [Suspect]
     Active Substance: PREDNISONE
     Indication: SYSTEMIC SCLERODERMA
     Dosage: WITH RAPID DECREASE; LATER ADMINISTERED AS 5 MG/DAY
     Route: 065
     Dates: start: 201408
  16. PREDNISONE. [Suspect]
     Active Substance: PREDNISONE
     Indication: CONGESTIVE CARDIOMYOPATHY
  17. DIGOXIN. [Suspect]
     Active Substance: DIGOXIN
     Indication: PERICARDIAL EFFUSION
  18. DIGOXIN. [Suspect]
     Active Substance: DIGOXIN
     Indication: CONGESTIVE CARDIOMYOPATHY
  19. PREDNISONE. [Suspect]
     Active Substance: PREDNISONE
     Indication: PERICARDITIS
  20. DIGOXIN. [Suspect]
     Active Substance: DIGOXIN
     Indication: CARDIAC TAMPONADE

REACTIONS (1)
  - Drug ineffective [Unknown]
